FAERS Safety Report 9187356 (Version 1)
Quarter: 2013Q1

REPORT INFORMATION
  Report Type: Spontaneous
  Country: TR (occurrence: TR)
  Receive Date: 20130325
  Receipt Date: 20130325
  Transmission Date: 20140127
  Serious: Yes (Hospitalization)
  Sender: FDA-Public Use
  Company Number: PHHY2013TR027855

PATIENT
  Age: 9 Year
  Sex: Male
  Weight: 21 kg

DRUGS (6)
  1. EXJADE [Suspect]
     Indication: THALASSAEMIA BETA
     Dosage: 250 MG, DAILY
     Route: 048
     Dates: start: 2011
  2. FOLIC ACID [Concomitant]
     Dosage: 0.5 MG, DAILY
     Route: 048
     Dates: start: 2008
  3. AMOXICILLIN [Concomitant]
     Dosage: 5 ML, DAILY
     Route: 048
     Dates: start: 2008
  4. ZINC SULFATE HEPTAHYDRATE [Concomitant]
     Dosage: 5 ML, DAILY
     Route: 048
     Dates: start: 2008
  5. BUDESONIDE [Concomitant]
     Dosage: ONE SPRAY
     Dates: start: 2010
  6. HYDROXYUREA [Concomitant]
     Dosage: 1 DF, DAILY
     Route: 048
     Dates: start: 2012

REACTIONS (2)
  - Mouth ulceration [Recovered/Resolved]
  - Pyrexia [Recovered/Resolved]
